FAERS Safety Report 7421020-9 (Version None)
Quarter: 2011Q2

REPORT INFORMATION
  Report Type: 
  Country: None (occurrence: None)
  Receive Date: 20110418
  Receipt Date: 20110407
  Transmission Date: 20111010
  Serious: Yes (Hospitalization)
  Sender: FDA-Public Use
  Company Number: BR-ASTRAZENECA-2010SE57239

PATIENT
  Age: 70 Year
  Sex: Female
  Weight: 94 kg

DRUGS (8)
  1. ATACAND COMB [Suspect]
     Indication: HYPERTENSION
     Dosage: 16/5MG
     Route: 048
     Dates: start: 20101101, end: 20110201
  2. ATACAND [Suspect]
     Indication: HYPERTENSION
     Route: 048
     Dates: start: 20080101, end: 20101101
  3. OMEPRAZOLE [Suspect]
     Route: 048
     Dates: start: 20101101, end: 20110405
  4. DIUBLOK [Concomitant]
     Indication: HYPERTENSION
     Route: 048
     Dates: start: 20080101
  5. OMEPRAZOLE [Suspect]
     Indication: GASTRITIS
     Route: 048
     Dates: start: 20060101, end: 20101101
  6. OMEPRAZOLE [Suspect]
     Route: 048
     Dates: start: 20101101, end: 20110405
  7. UNKNOWN [Concomitant]
     Indication: BLOOD CHOLESTEROL INCREASED
     Route: 048
     Dates: end: 20110201
  8. OMEPRAZOLE [Suspect]
     Indication: ULCER
     Route: 048
     Dates: start: 20060101, end: 20101101

REACTIONS (9)
  - DRUG DOSE OMISSION [None]
  - BLOOD PRESSURE INCREASED [None]
  - ULCER [None]
  - DYSGEUSIA [None]
  - CHOLELITHIASIS [None]
  - HYPERTENSION [None]
  - GASTRITIS [None]
  - ABDOMINAL PAIN UPPER [None]
  - DRUG INEFFECTIVE [None]
